FAERS Safety Report 23132007 (Version 1)
Quarter: 2023Q4

REPORT INFORMATION
  Report Type: Spontaneous
  Country: US (occurrence: US)
  Receive Date: 20231101
  Receipt Date: 20231101
  Transmission Date: 20240110
  Serious: No
  Sender: FDA-Public Use
  Company Number: US-Accord-288678

PATIENT
  Age: 95 Year
  Sex: Male
  Weight: 74.39 kg

DRUGS (1)
  1. ESCITALOPRAM [Suspect]
     Active Substance: ESCITALOPRAM OXALATE
     Indication: Anxiety
     Dates: start: 202211

REACTIONS (9)
  - Asthenia [Unknown]
  - Malaise [Unknown]
  - Tinnitus [Unknown]
  - Pain in extremity [Unknown]
  - Decreased appetite [Unknown]
  - Anxiety [Unknown]
  - Depression [Unknown]
  - Drug ineffective [Unknown]
  - Treatment noncompliance [Unknown]
